FAERS Safety Report 16135813 (Version 2)
Quarter: 2020Q1

REPORT INFORMATION
  Report Type: Spontaneous
  Country: FR (occurrence: FR)
  Receive Date: 20190329
  Receipt Date: 20200109
  Transmission Date: 20200409
  Serious: Yes (Other)
  Sender: FDA-Public Use
  Company Number: FR-TEVA-2019-FR-1030982

PATIENT
  Age: 38 Year
  Sex: Female

DRUGS (2)
  1. KETOPROFENE [Suspect]
     Active Substance: KETOPROFEN
     Route: 061
     Dates: start: 20180619, end: 20180619
  2. DICLOFENAC [Suspect]
     Active Substance: DICLOFENAC
     Route: 061
     Dates: start: 20180619, end: 20180619

REACTIONS (1)
  - Angioedema [Recovered/Resolved]

NARRATIVE: CASE EVENT DATE: 20180619
